FAERS Safety Report 19682638 (Version 5)
Quarter: 2021Q4

REPORT INFORMATION
  Report Type: Report from Study
  Country: US (occurrence: US)
  Receive Date: 20210811
  Receipt Date: 20211221
  Transmission Date: 20220303
  Serious: Yes (Other)
  Sender: FDA-Public Use
  Company Number: US-TAIHO ONCOLOGY INC-EU-2021-02063

PATIENT
  Age: 73 Year
  Sex: Male

DRUGS (16)
  1. LONSURF [Suspect]
     Active Substance: TIPIRACIL HYDROCHLORIDE\TRIFLURIDINE
     Indication: Rectal cancer metastatic
     Dosage: CYCLE 1
     Route: 048
     Dates: start: 20181105
  2. LONSURF [Suspect]
     Active Substance: TIPIRACIL HYDROCHLORIDE\TRIFLURIDINE
     Dosage: CYCLE, DOSE AND FREQUENCY UNKNOWN
     Route: 048
     Dates: end: 20210819
  3. DEXAMETHASONE [Concomitant]
     Active Substance: DEXAMETHASONE
     Indication: Gastrointestinal inflammation
  4. XARELTO [Concomitant]
     Active Substance: RIVAROXABAN
     Indication: Thrombosis
  5. ATIVAN [Concomitant]
     Active Substance: LORAZEPAM
  6. CORTISONE [Concomitant]
     Active Substance: CORTISONE
  7. GABAPENTIN [Concomitant]
     Active Substance: GABAPENTIN
  8. ACETAMINOPHEN\HYDROCODONE [Concomitant]
     Active Substance: ACETAMINOPHEN\HYDROCODONE
  9. LEVOFLOXACIN [Concomitant]
     Active Substance: LEVOFLOXACIN
  10. ONDANSETRON [Concomitant]
     Active Substance: ONDANSETRON
  11. TRAMADOL [Concomitant]
     Active Substance: TRAMADOL
  12. LORAZEPAM [Concomitant]
     Active Substance: LORAZEPAM
  13. TYLENOL [Concomitant]
     Active Substance: ACETAMINOPHEN
  14. APIXABAN [Concomitant]
     Active Substance: APIXABAN
  15. HYDROCODONE [Concomitant]
     Active Substance: HYDROCODONE
  16. BENADRYL [Concomitant]
     Active Substance: DIPHENHYDRAMINE HYDROCHLORIDE

REACTIONS (20)
  - Small intestinal obstruction [Unknown]
  - Hepatic vein occlusion [Unknown]
  - Aortic bypass [Unknown]
  - Fluid retention [Unknown]
  - Muscular weakness [Unknown]
  - Dysstasia [Unknown]
  - Gait disturbance [Unknown]
  - Peripheral swelling [Unknown]
  - Blister [Unknown]
  - Erythema [Unknown]
  - Swelling [Unknown]
  - Pain [Unknown]
  - White blood cell count decreased [Not Recovered/Not Resolved]
  - Constipation [Not Recovered/Not Resolved]
  - Dizziness postural [Unknown]
  - Nausea [Not Recovered/Not Resolved]
  - Fatigue [Not Recovered/Not Resolved]
  - Pruritus [Unknown]
  - Diarrhoea [Not Recovered/Not Resolved]
  - Vomiting [Not Recovered/Not Resolved]

NARRATIVE: CASE EVENT DATE: 20210101
